FAERS Safety Report 7039299-4 (Version None)
Quarter: 2010Q4

REPORT INFORMATION
  Report Type: 
  Country: None (occurrence: None)
  Receive Date: 20101012
  Receipt Date: 20101004
  Transmission Date: 20110411
  Serious: Yes (Other)
  Sender: FDA-Public Use
  Company Number: FR-SANOFI-AVENTIS-2010SA059120

PATIENT
  Age: 64 Year
  Sex: Male

DRUGS (9)
  1. URBANYL [Suspect]
     Indication: PRODUCT USED FOR UNKNOWN INDICATION
     Route: 048
     Dates: end: 20100913
  2. TRANXENE [Suspect]
     Indication: PRODUCT USED FOR UNKNOWN INDICATION
     Route: 048
     Dates: start: 20100828, end: 20100830
  3. TRANXENE [Suspect]
     Route: 048
     Dates: start: 20100830, end: 20100913
  4. STILNOX [Suspect]
     Indication: PRODUCT USED FOR UNKNOWN INDICATION
     Route: 048
     Dates: start: 20100828, end: 20100913
  5. COAPROVEL [Concomitant]
     Indication: PRODUCT USED FOR UNKNOWN INDICATION
  6. GLUCOVANCE [Concomitant]
     Indication: PRODUCT USED FOR UNKNOWN INDICATION
  7. VINCRISTINE [Concomitant]
     Dates: start: 20100828, end: 20100907
  8. ZAVEDOS [Concomitant]
     Dates: start: 20100828, end: 20100907
  9. DEXAMETHASONE [Concomitant]
     Dates: start: 20100828, end: 20100907

REACTIONS (2)
  - COMA [None]
  - CONFUSIONAL STATE [None]
